FAERS Safety Report 14698640 (Version 3)
Quarter: 2019Q1

REPORT INFORMATION
  Report Type: Spontaneous
  Country: FR (occurrence: FR)
  Receive Date: 20180330
  Receipt Date: 20190326
  Transmission Date: 20190417
  Serious: Yes (Other)
  Sender: FDA-Public Use
  Company Number: CN-ALKEM LABORATORIES LIMITED-CN-ALKEM-2018-01681

PATIENT
  Age: 64 Year
  Sex: Male

DRUGS (5)
  1. CEFUROXIME AXETIL. [Suspect]
     Active Substance: CEFUROXIME AXETIL
     Indication: PROPHYLAXIS
  2. TROPICAMIDE. [Concomitant]
     Active Substance: TROPICAMIDE
     Indication: PUPIL DILATION PROCEDURE
     Dosage: UNK
     Route: 065
  3. CEFUROXIME AXETIL. [Suspect]
     Active Substance: CEFUROXIME AXETIL
     Indication: ENDOPHTHALMITIS
     Dosage: 0.1 ML OF 10.0 MG/ML SOLUTION, STANDARD INTRACAMERAL DOSE
     Route: 065
  4. PHENYLEPHRINE [Concomitant]
     Active Substance: PHENYLEPHRINE\PHENYLEPHRINE HYDROCHLORIDE
     Indication: PUPIL DILATION PROCEDURE
     Dosage: UNK
     Route: 065
  5. TETRACAINE. [Concomitant]
     Active Substance: TETRACAINE
     Indication: ANAESTHESIA
     Dosage: UNK
     Route: 061

REACTIONS (4)
  - Serous retinal detachment [Recovered/Resolved]
  - Retinal toxicity [Recovered/Resolved]
  - Retinoschisis [Recovered/Resolved]
  - Retinal injury [Recovered/Resolved]
